FAERS Safety Report 7282295-2 (Version None)
Quarter: 2010Q4

REPORT INFORMATION
  Report Type: 
  Country: None (occurrence: None)
  Receive Date: 20101221
  Receipt Date: 20100914
  Transmission Date: 20110411
  Serious: Yes (Life-Threatening, Hospitalization, Disabling, Other)
  Sender: FDA-Public Use
  Company Number: WAES 1009USA03434

PATIENT
  Age: 69 Year
  Sex: Female
  Weight: 56.246 kg

DRUGS (6)
  1. JANUVIA [Suspect]
     Indication: DIABETES MELLITUS
     Dosage: 100 MG/DAILY/PO
     Route: 048
     Dates: start: 20100827, end: 20100908
  2. ATARAX (ALPRAZOLAM) [Concomitant]
  3. LASIX [Concomitant]
  4. ATENOLOL [Concomitant]
  5. SERTRALINE HYDROCHLORIDE [Concomitant]
  6. SPIRONOLACTONE [Concomitant]

REACTIONS (1)
  - PANCREATITIS [None]
